FAERS Safety Report 8138055-3 (Version None)
Quarter: 2012Q1

REPORT INFORMATION
  Report Type: 
  Country: None (occurrence: None)
  Receive Date: 20120215
  Receipt Date: 20120209
  Transmission Date: 20120608
  Serious: Yes (Other)
  Sender: FDA-Public Use
  Company Number: US-BAYER-2012-014294

PATIENT
  Sex: Female

DRUGS (1)
  1. YAZ [Suspect]

REACTIONS (6)
  - DEEP VEIN THROMBOSIS [None]
  - ANHEDONIA [None]
  - PAIN [None]
  - ANXIETY [None]
  - PAIN IN EXTREMITY [None]
  - OEDEMA PERIPHERAL [None]
